FAERS Safety Report 8757314 (Version 1)
Quarter: 2012Q4

REPORT INFORMATION
  Report Type: 
  Country: US (occurrence: US)
  Receive Date: 20120828
  Receipt Date: 20120828
  Transmission Date: 20130627
  Serious: No
  Sender: FDA-Public Use
  Company Number: US-PFIZER INC-2012208446

PATIENT
  Age: 50 Year
  Sex: Female
  Weight: 56.69 kg

DRUGS (6)
  1. NEURONTIN [Suspect]
     Indication: NEUROPATHY PERIPHERAL
     Dosage: 900 mg, UNK
  2. NEURONTIN [Suspect]
     Dosage: 100 mg, UNK
  3. NEURONTIN [Suspect]
     Dosage: 200 mg, UNK
  4. NEURONTIN [Suspect]
     Dosage: 300 mg, 3x/day
  5. CATAPRES [Concomitant]
     Indication: BLOOD PRESSURE ABNORMAL
     Dosage: UNK, weekly
  6. BENICAR [Concomitant]
     Indication: BLOOD PRESSURE ABNORMAL
     Dosage: 40 mg, daily

REACTIONS (4)
  - Musculoskeletal stiffness [Unknown]
  - Muscle rigidity [Unknown]
  - Skin burning sensation [Not Recovered/Not Resolved]
  - Sunburn [Not Recovered/Not Resolved]
